FAERS Safety Report 7412190-7 (Version None)
Quarter: 2011Q2

REPORT INFORMATION
  Report Type: 
  Country: None (occurrence: None)
  Receive Date: 20110405
  Receipt Date: 20110322
  Transmission Date: 20111010
  Serious: Yes (Other)
  Sender: FDA-Public Use
  Company Number: TPA2011A01191

PATIENT
  Age: 82 Year
  Sex: Male

DRUGS (1)
  1. ACTOS [Suspect]
     Dosage: 30 MG, 1 IN 1 D, MANY YEARS

REACTIONS (3)
  - JOINT SWELLING [None]
  - BLADDER CANCER [None]
  - URETERIC CANCER [None]
